FAERS Safety Report 13066165 (Version 1)
Quarter: 2016Q4

REPORT INFORMATION
  Report Type: Report from Study
  Country: IL (occurrence: IL)
  Receive Date: 20161227
  Receipt Date: 20161227
  Transmission Date: 20170207
  Serious: No
  Sender: FDA-Public Use
  Company Number: IL-JNJFOC-20161218124

PATIENT
  Age: 17 Year
  Sex: Female

DRUGS (2)
  1. ZINNAT [Concomitant]
     Active Substance: CEFUROXIME AXETIL
     Indication: URINARY TRACT INFECTION
     Route: 065
  2. STELARA [Suspect]
     Active Substance: USTEKINUMAB
     Indication: PSORIASIS
     Route: 058
     Dates: start: 20161116

REACTIONS (6)
  - Urinary tract infection [Not Recovered/Not Resolved]
  - Off label use [Unknown]
  - Headache [Unknown]
  - Incorrect dose administered [Unknown]
  - Inappropriate schedule of drug administration [Unknown]
  - Ingrowing nail [Not Recovered/Not Resolved]

NARRATIVE: CASE EVENT DATE: 20161116
